FAERS Safety Report 18337847 (Version 1)
Quarter: 2020Q3

REPORT INFORMATION
  Report Type: Spontaneous
  Country: US (occurrence: US)
  Receive Date: 20200930
  Receipt Date: 20200930
  Transmission Date: 20201103
  Serious: Yes (Hospitalization)
  Sender: FDA-Public Use
  Company Number: None

PATIENT
  Age: 62 Year
  Sex: Male
  Weight: 80 kg

DRUGS (3)
  1. CYCLOPHASPHAMIDE [Suspect]
     Active Substance: CYCLOPHOSPHAMIDE
  2. YESCARTA [Suspect]
     Active Substance: AXICABTAGENE CILOLEUCEL
  3. FLUDARABINE [Suspect]
     Active Substance: FLUDARABINE PHOSPHATE

REACTIONS (17)
  - Malaise [None]
  - C-reactive protein increased [None]
  - Fatigue [None]
  - Nausea [None]
  - Memory impairment [None]
  - Confusional state [None]
  - Clostridium difficile infection [None]
  - Dysstasia [None]
  - Cytokine release syndrome [None]
  - Myalgia [None]
  - Neurotoxicity [None]
  - Drug ineffective [None]
  - Pyrexia [None]
  - Serum ferritin increased [None]
  - Paraesthesia [None]
  - Orthostatic intolerance [None]
  - Disorientation [None]

NARRATIVE: CASE EVENT DATE: 20200806
